FAERS Safety Report 5373491-X (Version None)
Quarter: 2007Q2

REPORT INFORMATION
  Report Type: 
  Country: None (occurrence: None)
  Receive Date: 20070628
  Receipt Date: 20070619
  Transmission Date: 20071010
  Serious: Yes (Death, Life-Threatening, Hospitalization)
  Sender: FDA-Public Use
  Company Number: GB-AMGEN-US227077

PATIENT
  Sex: Female

DRUGS (2)
  1. ENBREL [Suspect]
     Indication: PSORIATIC ARTHROPATHY
     Route: 058
     Dates: start: 20070301, end: 20070514
  2. ENBREL [Suspect]
     Indication: PSORIASIS

REACTIONS (5)
  - ANAPHYLACTOID REACTION [None]
  - ANGIOEDEMA [None]
  - CHEST DISCOMFORT [None]
  - COR PULMONALE [None]
  - RESPIRATORY FAILURE [None]
